FAERS Safety Report 20793377 (Version 1)
Quarter: 2022Q2

REPORT INFORMATION
  Report Type: Spontaneous
  Country: IT (occurrence: IT)
  Receive Date: 20220506
  Receipt Date: 20220506
  Transmission Date: 20220721
  Serious: Yes (Other)
  Sender: FDA-Public Use
  Company Number: IT-CELLTRION INC.-2022IT005524

PATIENT

DRUGS (2)
  1. INFLIXIMAB [Suspect]
     Active Substance: INFLIXIMAB
     Indication: Takayasu^s arteritis
     Dosage: 5 MILLIGRAM/KILOGRAM AT 0, 2, AND 6 WEEKS, AND THEN EVERY 6 WEEKS
     Route: 042
  2. INFLIXIMAB [Suspect]
     Active Substance: INFLIXIMAB
     Dosage: STANDARD-DOSE; 5 MG/KG EVERY 6 WEEKS
     Route: 042

REACTIONS (3)
  - Takayasu^s arteritis [Unknown]
  - Paradoxical psoriasis [Unknown]
  - Off label use [Unknown]
